FAERS Safety Report 4841151-7 (Version None)
Quarter: 2005Q4

REPORT INFORMATION
  Report Type: 
  Country: None (occurrence: None)
  Receive Date: 20051130
  Receipt Date: 20051012
  Transmission Date: 20060501
  Serious: No
  Sender: FDA-Public Use
  Company Number: US-BRISTOL-MYERS SQUIBB COMPANY-13143383

PATIENT
  Age: 51 Year
  Sex: Male
  Weight: 62 kg

DRUGS (7)
  1. ABILIFY [Suspect]
  2. CARBIDOPA AND LEVODOPA [Concomitant]
  3. COMTAN [Concomitant]
  4. MULTI-VITAMIN [Concomitant]
  5. DOCUSATE SODIUM [Concomitant]
  6. ETODOLAC [Concomitant]
  7. ASACOL [Concomitant]

REACTIONS (2)
  - FALL [None]
  - GAIT DISTURBANCE [None]
